FAERS Safety Report 20508732 (Version 1)
Quarter: 2022Q1

REPORT INFORMATION
  Report Type: Spontaneous
  Country: US (occurrence: None)
  Receive Date: 20220223
  Receipt Date: 20220223
  Transmission Date: 20220424
  Serious: Yes (Life-Threatening, Hospitalization)
  Sender: FDA-Public Use
  Company Number: None

PATIENT
  Age: 63 Year
  Sex: Male
  Weight: 64 kg

DRUGS (1)
  1. VINORELBINE [Suspect]
     Active Substance: VINORELBINE TARTRATE
     Dosage: FREQUENCY : WEEKLY;?
     Route: 041
     Dates: start: 20220120, end: 20220127

REACTIONS (4)
  - Chest pain [None]
  - Pulmonary embolism [None]
  - Pneumonia [None]
  - Embolism venous [None]

NARRATIVE: CASE EVENT DATE: 20220120
